FAERS Safety Report 19280014 (Version 2)
Quarter: 2021Q2

REPORT INFORMATION
  Report Type: Spontaneous
  Country: CA (occurrence: CA)
  Receive Date: 20210520
  Receipt Date: 20210610
  Transmission Date: 20210717
  Serious: Yes (Other)
  Sender: FDA-Public Use
  Company Number: CA-PFIZER INC-2021513647

PATIENT
  Age: 40 Year
  Sex: Male

DRUGS (5)
  1. BICILLIN L?A [Suspect]
     Active Substance: PENICILLIN G BENZATHINE
     Dosage: 2 INJECTIONS, ONE IN EACH THIGH
     Dates: start: 20210504
  2. CIPRO [Concomitant]
     Active Substance: CIPROFLOXACIN HYDROCHLORIDE
     Dosage: UNK
     Route: 048
  3. MEROPEMED [Concomitant]
     Dosage: UNK
     Route: 042
  4. VANCOMYCIN [Concomitant]
     Active Substance: VANCOMYCIN
     Dosage: UNK
     Route: 042
  5. CLINDAMYCIN. [Concomitant]
     Active Substance: CLINDAMYCIN
     Dosage: UNK
     Route: 042

REACTIONS (7)
  - Injection site inflammation [Unknown]
  - Arthralgia [Unknown]
  - Product administered at inappropriate site [Unknown]
  - Embolia cutis medicamentosa [Unknown]
  - Syringe issue [Unknown]
  - Gait disturbance [Unknown]
  - Injection site pain [Unknown]

NARRATIVE: CASE EVENT DATE: 20210504
